FAERS Safety Report 6737085-3 (Version None)
Quarter: 2010Q2

REPORT INFORMATION
  Report Type: 
  Country: None (occurrence: None)
  Receive Date: 20100524
  Receipt Date: 20100513
  Transmission Date: 20101027
  Serious: Yes (Hospitalization)
  Sender: FDA-Public Use
  Company Number: 2005BI014009

PATIENT
  Age: 52 Year
  Sex: Female

DRUGS (1)
  1. AVONEX [Suspect]
     Indication: MULTIPLE SCLEROSIS
     Route: 030
     Dates: start: 20030405

REACTIONS (10)
  - CHEST PAIN [None]
  - CORONARY ARTERY DISEASE [None]
  - DISCOMFORT [None]
  - EAR PAIN [None]
  - HYPOTHYROIDISM [None]
  - LEFT VENTRICULAR HYPERTROPHY [None]
  - MITRAL VALVE DISEASE [None]
  - MITRAL VALVE INCOMPETENCE [None]
  - SNORING [None]
  - UTERINE HAEMORRHAGE [None]
